FAERS Safety Report 18636774 (Version 9)
Quarter: 2022Q4

REPORT INFORMATION
  Report Type: Report from Study
  Country: CN (occurrence: CN)
  Receive Date: 20201218
  Receipt Date: 20221209
  Transmission Date: 20230113
  Serious: Yes (Other)
  Sender: FDA-Public Use
  Company Number: CN-ASTELLAS-2020US043430

PATIENT
  Age: 74 Year
  Sex: Male
  Weight: 57 kg

DRUGS (11)
  1. ENZALUTAMIDE [Suspect]
     Active Substance: ENZALUTAMIDE
     Indication: Prostate cancer
     Dosage: UNK, UNKNOWN FREQ.
     Route: 048
     Dates: start: 20201023, end: 20201208
  2. ENZALUTAMIDE [Suspect]
     Active Substance: ENZALUTAMIDE
     Dosage: UNK, UNKNOWN FREQ.
     Route: 048
     Dates: start: 20201231, end: 20210202
  3. ENZALUTAMIDE [Suspect]
     Active Substance: ENZALUTAMIDE
     Dosage: UNK, UNKNOWN FREQ.
     Route: 048
     Dates: start: 20210202, end: 20210202
  4. DEGARELIX [Suspect]
     Active Substance: DEGARELIX
     Indication: Prostate cancer
     Dosage: 240 MG, ONCE
     Route: 030
     Dates: start: 20201023, end: 20201023
  5. DEGARELIX [Suspect]
     Active Substance: DEGARELIX
     Dosage: 80 MG, ONCE/4 WEEKS
     Route: 030
     Dates: start: 20201123
  6. DICLOFENAC SODIUM [Concomitant]
     Active Substance: DICLOFENAC SODIUM
     Indication: Pain
     Dosage: 50 MG, TWICE DAILY (SUSTAINED RELEASE CAPSULE)
     Route: 048
     Dates: start: 202009, end: 20201123
  7. METOPROLOL SUCCINATE [Concomitant]
     Active Substance: METOPROLOL SUCCINATE
     Indication: Hypertension
     Dosage: 47.5 MG, ONCE DAILY (SUSTAINED RELEASED TABLET)
     Route: 048
     Dates: start: 20201104, end: 20201123
  8. NIFEDIPINE [Concomitant]
     Active Substance: NIFEDIPINE
     Indication: Hypertension
     Dosage: 30 MG, ONCE DAILY (CONTROLLED RELEASE TABLETS)
     Route: 048
     Dates: start: 20201104, end: 20201123
  9. HERBALS\DIAMMONIUM GLYCYRRHIZINATE [Concomitant]
     Active Substance: HERBALS\DIAMMONIUM GLYCYRRHIZINATE
     Indication: Liver injury
     Route: 048
     Dates: start: 20201201, end: 20201206
  10. Qiang gu sheng xue [Concomitant]
     Indication: Anaemia
     Route: 048
     Dates: start: 20201106, end: 20201123
  11. Sheng xue bao [Concomitant]
     Indication: Anaemia
     Route: 048
     Dates: start: 20201106, end: 20201123

REACTIONS (1)
  - Hepatic function abnormal [Recovered/Resolved]

NARRATIVE: CASE EVENT DATE: 20201207
